FAERS Safety Report 9989869 (Version 1)
Quarter: 2013Q4

REPORT INFORMATION
  Report Type: Spontaneous
  Country: US (occurrence: None)
  Receive Date: 20131113
  Receipt Date: 20131113
  Transmission Date: 20140711
  Serious: Yes (Other)
  Sender: FDA-Public Use
  Company Number: ADR-203-00803

PATIENT
  Sex: Female

DRUGS (3)
  1. LIORESAL [Suspect]
     Indication: MUSCLE SPASTICITY
  2. LIORESAL [Suspect]
  3. ORAL BACLOFEN [Suspect]

REACTIONS (11)
  - Implant site pain [None]
  - Drug ineffective [None]
  - Impaired healing [None]
  - Wound dehiscence [None]
  - Underdose [None]
  - Drug withdrawal syndrome [None]
  - Dizziness [None]
  - Flushing [None]
  - Feeling hot [None]
  - Cold sweat [None]
  - Pain [None]
